FAERS Safety Report 8780281 (Version 1)
Quarter: 2012Q4

REPORT INFORMATION
  Report Type: Spontaneous
  Country: US (occurrence: None)
  Receive Date: 20120905
  Receipt Date: 20120905
  Transmission Date: 20130627
  Serious: Yes (Hospitalization, Other)
  Sender: FDA-Public Use
  Company Number: None

PATIENT
  Age: 84 Year
  Sex: Female
  Weight: 56.7 kg

DRUGS (4)
  1. CLONIDINE [Suspect]
     Dosage: 1 mg up to 6 daily oral
     Route: 048
     Dates: start: 20120417
  2. CLONIDINE [Suspect]
     Dosage: 1 mg up to 6 daily oral
     Route: 048
     Dates: start: 20120417
  3. CLONIDINE [Suspect]
     Dosage: 1/4 .025  2x day oral
     Route: 048
     Dates: start: 20120628
  4. CLONIDINE [Suspect]
     Dosage: 1/4 .025  2x day oral
     Route: 048
     Dates: start: 20120628

REACTIONS (13)
  - Rash [None]
  - Anxiety [None]
  - Asthenia [None]
  - Oedema peripheral [None]
  - Constipation [None]
  - Dysphagia [None]
  - Dry mouth [None]
  - Depression [None]
  - Nervousness [None]
  - Dysarthria [None]
  - Confusional state [None]
  - Somnolence [None]
  - Fall [None]
